FAERS Safety Report 26076701 (Version 1)
Quarter: 2025Q4

REPORT INFORMATION
  Report Type: Spontaneous
  Country: EU (occurrence: EU)
  Receive Date: 20251121
  Receipt Date: 20251121
  Transmission Date: 20260118
  Serious: Yes (Hospitalization)
  Sender: BIOMARIN
  Company Number: EU-BIOMARINAP-DE-2025-170184

PATIENT
  Age: 14 Year
  Sex: Female

DRUGS (1)
  1. NAGLAZYME [Suspect]
     Active Substance: GALSULFASE
     Indication: Product used for unknown indication
     Dosage: UNK

REACTIONS (3)
  - Knee operation [Unknown]
  - Limb operation [Unknown]
  - Ankle operation [Unknown]

NARRATIVE: CASE EVENT DATE: 20251113
